FAERS Safety Report 23229584 (Version 2)
Quarter: 2023Q4

REPORT INFORMATION
  Report Type: Spontaneous
  Country: US (occurrence: None)
  Receive Date: 20231127
  Receipt Date: 20231214
  Transmission Date: 20240110
  Serious: Yes (Other)
  Sender: FDA-Public Use
  Company Number: US-ACS-20230355

PATIENT
  Sex: Female

DRUGS (1)
  1. ERTAPENEM [Suspect]
     Active Substance: ERTAPENEM

REACTIONS (1)
  - Seizure [Unknown]
